FAERS Safety Report 19787171 (Version 2)
Quarter: 2021Q4

REPORT INFORMATION
  Report Type: Report from Study
  Country: TR (occurrence: TR)
  Receive Date: 20210903
  Receipt Date: 20211013
  Transmission Date: 20220303
  Serious: Yes (Hospitalization)
  Sender: FDA-Public Use
  Company Number: TR-PFIZER INC-202101128363

PATIENT
  Age: 70 Year
  Sex: Male
  Weight: 45 kg

DRUGS (3)
  1. CARBOPLATIN [Suspect]
     Active Substance: CARBOPLATIN
     Indication: Squamous cell carcinoma of lung
     Dosage: AUC 6 Q3W FOR 4 CYCLES
     Route: 042
     Dates: start: 20210615
  2. PACLITAXEL [Suspect]
     Active Substance: PACLITAXEL
     Indication: Squamous cell carcinoma of lung
     Dosage: 200 MG/M2, Q3W (FOR 4 CYCLES)
     Route: 042
     Dates: start: 20210615
  3. INVESTIGATIONAL PRODUCT [Suspect]
     Active Substance: INVESTIGATIONAL PRODUCT
     Indication: Squamous cell carcinoma of lung
     Dosage: INTRAVENOUS (IV) INFUSION, Q3W
     Route: 042
     Dates: start: 20210615

REACTIONS (2)
  - Hypercalcaemia [Recovered/Resolved]
  - Pneumonia [Recovered/Resolved]

NARRATIVE: CASE EVENT DATE: 20210817
